FAERS Safety Report 7056102-7 (Version None)
Quarter: 2010Q4

REPORT INFORMATION
  Report Type: 
  Country: None (occurrence: None)
  Receive Date: 20101021
  Receipt Date: 20101013
  Transmission Date: 20110411
  Serious: Yes (Other)
  Sender: FDA-Public Use
  Company Number: PHHY2010US68977

PATIENT
  Sex: Female

DRUGS (7)
  1. DIOVAN HCT [Suspect]
     Dosage: 320/25 MG
  2. METOPROLOL [Suspect]
     Dosage: 15 MG
  3. NEXIUM [Concomitant]
     Dosage: 20 MG
  4. PRAVASTATIN [Concomitant]
     Dosage: 40 MG
  5. ATENOLOL [Concomitant]
  6. XALATAN [Concomitant]
  7. ASPIRIN [Concomitant]
     Dosage: 81 MG

REACTIONS (3)
  - CARDIAC PACEMAKER INSERTION [None]
  - HEART RATE INCREASED [None]
  - SICK SINUS SYNDROME [None]
